FAERS Safety Report 5306349-2 (Version None)
Quarter: 2007Q2

REPORT INFORMATION
  Report Type: 
  Country: None (occurrence: None)
  Receive Date: 20070424
  Receipt Date: 20070413
  Transmission Date: 20071010
  Serious: Yes (Hospitalization)
  Sender: FDA-Public Use
  Company Number: US-ELI_LILLY_AND_COMPANY-US200704003126

PATIENT
  Sex: Male

DRUGS (2)
  1. HUMALOG [Suspect]
     Indication: DIABETES MELLITUS INSULIN-DEPENDENT
     Dosage: 5 U, UNKNOWN
     Dates: start: 20040101
  2. LANTUS [Concomitant]
     Dosage: UNK, UNKNOWN

REACTIONS (6)
  - BLOOD GLUCOSE DECREASED [None]
  - BLOOD GLUCOSE INCREASED [None]
  - DRY MOUTH [None]
  - GAIT DISTURBANCE [None]
  - LOWER LIMB FRACTURE [None]
  - MALAISE [None]
